FAERS Safety Report 14487453 (Version 6)
Quarter: 2019Q2

REPORT INFORMATION
  Report Type: Report from Study
  Country: NO (occurrence: NO)
  Receive Date: 20180205
  Receipt Date: 20190518
  Transmission Date: 20190711
  Serious: Yes (Death, Hospitalization, Other)
  Sender: FDA-Public Use
  Company Number: PHHY2017NO163025

PATIENT
  Age: 83 Year
  Sex: Female
  Weight: 80 kg

DRUGS (3)
  1. TAFINLAR [Suspect]
     Active Substance: DABRAFENIB MESYLATE
     Indication: MALIGNANT MELANOMA
     Dosage: 150 MG, BID
     Route: 048
     Dates: start: 20170714, end: 20171122
  2. MEKINIST [Suspect]
     Active Substance: TRAMETINIB DIMETHYL SULFOXIDE
     Indication: MALIGNANT MELANOMA
     Dosage: 2 MG, QD
     Route: 048
     Dates: start: 20170714, end: 20171122
  3. EXFORGE [Concomitant]
     Active Substance: AMLODIPINE BESYLATE\VALSARTAN
     Indication: HYPERTENSION
     Dosage: UNK
     Route: 065
     Dates: start: 2006, end: 20170801

REACTIONS (24)
  - Dizziness [Recovered/Resolved]
  - Blood pressure diastolic decreased [Recovered/Resolved]
  - Fatigue [Recovered/Resolved]
  - Cough [Recovered/Resolved]
  - Metastases to lung [Fatal]
  - Nausea [Recovered/Resolved]
  - Feeling abnormal [Unknown]
  - Malignant neoplasm progression [Fatal]
  - Bone marrow disorder [Unknown]
  - Mucosal haemorrhage [Recovering/Resolving]
  - Gait inability [Unknown]
  - Thrombocytopenia [Fatal]
  - Metastases to bone marrow [Fatal]
  - Haemorrhage [Unknown]
  - Metastases to skin [Fatal]
  - Dizziness [Recovered/Resolved]
  - C-reactive protein increased [Recovered/Resolved]
  - Nausea [Recovered/Resolved]
  - Stomatitis [Recovered/Resolved]
  - Rash [Recovered/Resolved]
  - Constipation [Recovered/Resolved]
  - Metastases to central nervous system [Fatal]
  - Malignant melanoma [Fatal]
  - Orthostatic hypotension [Recovered/Resolved]

NARRATIVE: CASE EVENT DATE: 20170714
